FAERS Safety Report 18395862 (Version 2)
Quarter: 2020Q4

REPORT INFORMATION
  Report Type: Report from Study
  Country: US (occurrence: US)
  Receive Date: 20201018
  Receipt Date: 20201102
  Transmission Date: 20210114
  Serious: Yes (Disabling, Other)
  Sender: FDA-Public Use
  Company Number: US-SA-2020SA286423

PATIENT

DRUGS (1)
  1. DUPILUMAB [Suspect]
     Active Substance: DUPILUMAB
     Indication: DERMATITIS ATOPIC
     Dosage: 300 MG, QOW
     Route: 058
     Dates: start: 202009

REACTIONS (14)
  - Periorbital swelling [Recovering/Resolving]
  - Swelling face [Unknown]
  - Mental disorder [Unknown]
  - Eye discharge [Recovering/Resolving]
  - Malaise [Unknown]
  - Vision blurred [Recovering/Resolving]
  - Eye pruritus [Recovering/Resolving]
  - Eye infection [Recovering/Resolving]
  - Loss of personal independence in daily activities [Unknown]
  - Ocular hyperaemia [Recovering/Resolving]
  - Photophobia [Recovering/Resolving]
  - Visual impairment [Recovering/Resolving]
  - Blindness transient [Recovered/Resolved]
  - Migraine [Unknown]

NARRATIVE: CASE EVENT DATE: 2020
